FAERS Safety Report 10198582 (Version 2)
Quarter: 2017Q2

REPORT INFORMATION
  Report Type: Spontaneous
  Country: US (occurrence: US)
  Receive Date: 20140527
  Receipt Date: 20170602
  Transmission Date: 20170829
  Serious: No
  Sender: FDA-Public Use
  Company Number: US-NOVEN-13US008205

PATIENT

DRUGS (4)
  1. DAYTRANA [Suspect]
     Active Substance: METHYLPHENIDATE
     Dosage: USING TWO 10 MG PATCHES TOGETHER TO MAKE UP FOR A DOSE OF 20 MG,UNK
     Route: 062
     Dates: start: 201612, end: 201612
  2. DAYTRANA [Suspect]
     Active Substance: METHYLPHENIDATE
     Dosage: 20 MG, UNK
     Route: 062
  3. QUINIDINE GLUCONATE. [Concomitant]
     Active Substance: QUINIDINE GLUCONATE
     Dosage: UNK, BEDTIME
  4. DAYTRANA [Suspect]
     Active Substance: METHYLPHENIDATE
     Indication: ATTENTION DEFICIT/HYPERACTIVITY DISORDER
     Dosage: 20 MG, UNKNOWN
     Route: 062
     Dates: start: 20131004

REACTIONS (8)
  - Application site scab [Not Recovered/Not Resolved]
  - Application site erythema [Not Recovered/Not Resolved]
  - Application site exfoliation [Not Recovered/Not Resolved]
  - Wrong technique in product usage process [Unknown]
  - Application site rash [Recovered/Resolved]
  - Dermatitis contact [Not Recovered/Not Resolved]
  - Drug administered at inappropriate site [Not Recovered/Not Resolved]
  - Application site pruritus [Not Recovered/Not Resolved]

NARRATIVE: CASE EVENT DATE: 20131025
